FAERS Safety Report 26154053 (Version 3)
Quarter: 2025Q4

REPORT INFORMATION
  Report Type: Report from Study
  Country: KR (occurrence: KR)
  Receive Date: 20251215
  Receipt Date: 20251223
  Transmission Date: 20260117
  Serious: Yes (Death, Other)
  Sender: TAKEDA
  Company Number: KR-TAKEDA-2025TUS111867

PATIENT
  Age: 32 Year
  Sex: Female

DRUGS (18)
  1. FRUQUINTINIB [Suspect]
     Active Substance: FRUQUINTINIB
     Indication: Colorectal cancer metastatic
     Dosage: 5 MILLIGRAM, QD
     Dates: start: 20251024, end: 20251113
  2. LEVOFLOXACIN [Concomitant]
     Active Substance: LEVOFLOXACIN
     Indication: Device occlusion
     Dosage: UNK UNK, QD
     Dates: start: 20251117, end: 20251121
  3. PIPERACILLIN SODIUM\TAZOBACTAM SODIUM [Concomitant]
     Active Substance: PIPERACILLIN SODIUM\TAZOBACTAM SODIUM
     Indication: Pyrexia
     Dosage: UNK UNK, TID
     Dates: start: 20251122
  4. ABSTRAL [Concomitant]
     Active Substance: FENTANYL CITRATE
     Indication: Colorectal cancer metastatic
     Dosage: UNK
  5. CETIZAL [Concomitant]
     Indication: Laryngitis
     Dosage: UNK UNK, QD
     Dates: start: 20251023, end: 20251111
  6. Dulackhan easy [Concomitant]
     Indication: Constipation
     Dosage: UNK UNK, TID
     Dates: start: 20250414, end: 20251203
  7. METOCLOPRAMIDE HYDROCHLORIDE [Concomitant]
     Active Substance: METOCLOPRAMIDE HYDROCHLORIDE
     Indication: Nausea
     Dosage: UNK UNK, TID
     Dates: start: 20251106
  8. RINOEBASTEL [Concomitant]
     Indication: Laryngitis
     Dosage: UNK UNK, QD
     Dates: start: 20251106, end: 20251111
  9. ULTRACET ER SEMI [Concomitant]
     Indication: Pain
     Dosage: UNK UNK, BID
     Dates: start: 20250422
  10. GASTIIN CR [Concomitant]
     Indication: Dyspepsia
     Dosage: UNK UNK, QD
     Dates: start: 20251020
  11. HERBALS [Concomitant]
     Active Substance: HERBALS
     Indication: Dyspepsia
     Dosage: UNK UNK, TID
     Dates: start: 20251028
  12. NORZYME [Concomitant]
     Indication: Dyspepsia
     Dosage: UNK UNK, TID
     Dates: start: 20250323
  13. RABIET [Concomitant]
     Indication: Dyspepsia
     Dosage: UNK UNK, QD
     Dates: start: 20250805
  14. URUSA [Concomitant]
     Active Substance: URSODIOL
     Indication: Colorectal cancer metastatic
     Dosage: UNK UNK, TID
     Dates: start: 20251028
  15. Albumon [Concomitant]
  16. MAGNESIUM [Concomitant]
     Active Substance: MAGNESIUM
     Indication: Prophylaxis
     Dosage: UNK UNK, QD
     Dates: start: 20251026, end: 20251027
  17. CALCIUM GLUCONATE [Concomitant]
     Active Substance: CALCIUM GLUCONATE
     Indication: Prophylaxis
     Dosage: UNK UNK, QD
     Dates: start: 20251026, end: 20251026
  18. NAXEN-F [Concomitant]
     Indication: Pyrexia
     Dosage: UNK UNK, BID
     Dates: start: 20251023

REACTIONS (1)
  - Biliary sepsis [Fatal]

NARRATIVE: CASE EVENT DATE: 20251204
